FAERS Safety Report 8034133-8 (Version None)
Quarter: 2012Q1

REPORT INFORMATION
  Report Type: 
  Country: None (occurrence: None)
  Receive Date: 20120110
  Receipt Date: 20111227
  Transmission Date: 20120608
  Serious: Yes (Death)
  Sender: FDA-Public Use
  Company Number: PR-ACTELION-A-US2011-58798

PATIENT

DRUGS (3)
  1. TRACLEER [Suspect]
     Indication: PULMONARY ARTERIAL HYPERTENSION
     Dosage: UNK
     Route: 048
     Dates: start: 20100822
  2. DIGOXIN [Concomitant]
  3. COUMADIN [Concomitant]

REACTIONS (9)
  - HEPATIC FAILURE [None]
  - DISEASE COMPLICATION [None]
  - GENERALISED OEDEMA [None]
  - CARDIOMYOPATHY [None]
  - PULMONARY OEDEMA [None]
  - PULMONARY HYPERTENSION [None]
  - CARDIAC FAILURE CONGESTIVE [None]
  - RENAL FAILURE [None]
  - ATRIAL SEPTAL DEFECT [None]
